FAERS Safety Report 12265709 (Version 1)
Quarter: 2016Q2

REPORT INFORMATION
  Report Type: Spontaneous
  Country: IT (occurrence: IT)
  Receive Date: 20160413
  Receipt Date: 20160413
  Transmission Date: 20160815
  Serious: Yes (Other)
  Sender: FDA-Public Use
  Company Number: IT-BAUSCH-BL-2016-008496

PATIENT
  Age: 1 Day
  Weight: 2 kg

DRUGS (2)
  1. EPIRUBICIN HYDROCHLORIDE. [Interacting]
     Active Substance: EPIRUBICIN HYDROCHLORIDE
     Indication: CHEMOTHERAPY
     Dosage: 90MG PER SQUARE METER OF BODY SURFACE AREA, CYCLIC FREQUENCY
     Route: 064
  2. DEXAMETHASONE. [Suspect]
     Active Substance: DEXAMETHASONE
     Indication: PRODUCT USED FOR UNKNOWN INDICATION
     Route: 064

REACTIONS (4)
  - Ventricular hypokinesia [Unknown]
  - Drug interaction [Unknown]
  - Cardiotoxicity [Unknown]
  - Foetal exposure during pregnancy [Unknown]
